FAERS Safety Report 23118728 (Version 1)
Quarter: 2023Q4

REPORT INFORMATION
  Report Type: Spontaneous
  Country: DK (occurrence: DK)
  Receive Date: 20231028
  Receipt Date: 20231028
  Transmission Date: 20240109
  Serious: Yes (Hospitalization)
  Sender: FDA-Public Use
  Company Number: None

PATIENT
  Age: 57 Year
  Sex: Male

DRUGS (9)
  1. METHOTREXATE [Suspect]
     Active Substance: METHOTREXATE
     Indication: Psoriasis
     Dosage: DOSAGE: INCREASED FROM 15 MG WEEKLY TO 20 MG WEEKLY AT 30MAR2023.
     Dates: start: 20221228, end: 20230629
  2. CLOBETASOL [Concomitant]
     Active Substance: CLOBETASOL
     Indication: Psoriasis
     Dates: start: 20180614
  3. ENSTILAR [Concomitant]
     Active Substance: BETAMETHASONE DIPROPIONATE\CALCIPOTRIENE HYDRATE
     Indication: Psoriasis
     Dates: start: 20220317
  4. LOCOID [Concomitant]
     Active Substance: HYDROCORTISONE BUTYRATE
     Indication: Psoriasis
     Dates: start: 20220317
  5. VIAGRA [Concomitant]
     Active Substance: SILDENAFIL CITRATE
     Indication: Erectile dysfunction
     Dates: start: 20181219
  6. METFORMIN [Concomitant]
     Active Substance: METFORMIN HYDROCHLORIDE
     Indication: Type 2 diabetes mellitus
     Dates: start: 20210222
  7. FOLIC ACID [Concomitant]
     Active Substance: FOLIC ACID
     Indication: Vitamin supplementation
     Dates: start: 20221228
  8. PEVISONE [Concomitant]
     Indication: Psoriasis
     Dates: start: 20220519
  9. ATORVASTATIN [Concomitant]
     Active Substance: ATORVASTATIN
     Indication: Hypercholesterolaemia
     Dates: start: 20210312

REACTIONS (4)
  - Fine motor skill dysfunction [Unknown]
  - Dysarthria [Not Recovered/Not Resolved]
  - Balance disorder [Unknown]
  - Thalamic infarction [Recovered/Resolved with Sequelae]

NARRATIVE: CASE EVENT DATE: 20230604
